FAERS Safety Report 4663920-9 (Version None)
Quarter: 2005Q2

REPORT INFORMATION
  Report Type: 
  Country: None (occurrence: None)
  Receive Date: 20050511
  Receipt Date: 20050202
  Transmission Date: 20051028
  Serious: Yes (Other)
  Sender: FDA-Public Use
  Company Number: 388843

PATIENT
  Age: 51 Year
  Sex: Female

DRUGS (2)
  1. PEGASYS [Suspect]
     Indication: HEPATITIS C VIRUS
     Dosage: 180 MCG 1 PER WEEK SUBCUTANEOUS
     Route: 058
     Dates: start: 20041003
  2. RIBASPHERE [Suspect]
     Indication: HEPATITIS C VIRUS
     Dosage: 1200 MG DAILY ORAL
     Route: 048
     Dates: start: 20041003

REACTIONS (19)
  - ALOPECIA [None]
  - ASTHENIA [None]
  - CHILLS [None]
  - DEPRESSION [None]
  - DIZZINESS [None]
  - FATIGUE [None]
  - GINGIVAL BLEEDING [None]
  - HAEMOGLOBIN DECREASED [None]
  - HAEMOLYTIC ANAEMIA [None]
  - HEADACHE [None]
  - HYPERAESTHESIA [None]
  - IRRITABILITY [None]
  - MOOD SWINGS [None]
  - NAUSEA [None]
  - PHOTOSENSITIVITY REACTION [None]
  - PLATELET COUNT DECREASED [None]
  - PSORIASIS [None]
  - VISION BLURRED [None]
  - WHITE BLOOD CELL COUNT DECREASED [None]
